FAERS Safety Report 9317471 (Version 1)
Quarter: 2013Q2

REPORT INFORMATION
  Report Type: Spontaneous
  Country: US (occurrence: US)
  Receive Date: 20130530
  Receipt Date: 20130530
  Transmission Date: 20140414
  Serious: No
  Sender: FDA-Public Use
  Company Number: US-GLAXOSMITHKLINE-A0780134A

PATIENT
  Age: 66 Year
  Sex: Male

DRUGS (4)
  1. VENTOLIN [Suspect]
     Indication: BRONCHOSPASM
     Dosage: 1PUFF VARIABLE DOSE
     Route: 055
     Dates: start: 200903, end: 20090422
  2. ADVAIR [Suspect]
     Indication: CHRONIC OBSTRUCTIVE PULMONARY DISEASE
     Dosage: 1PUFF TWICE PER DAY
     Route: 055
     Dates: start: 2009
  3. NO CONCURRENT MEDICATION [Concomitant]
  4. VENTOLIN [Concomitant]

REACTIONS (4)
  - Drug ineffective [Unknown]
  - Dyspnoea [Not Recovered/Not Resolved]
  - Dysphonia [Unknown]
  - Product quality issue [Unknown]
